FAERS Safety Report 21244682 (Version 1)
Quarter: 2022Q3

REPORT INFORMATION
  Report Type: Spontaneous
  Country: BR (occurrence: BR)
  Receive Date: 20220823
  Receipt Date: 20220823
  Transmission Date: 20221027
  Serious: Yes (Hospitalization, Other)
  Sender: FDA-Public Use
  Company Number: BR-TEVA-2022-BR-2066448

PATIENT
  Age: 78 Year
  Sex: Female
  Weight: 55.25 kg

DRUGS (1)
  1. CARBOPLATIN [Suspect]
     Active Substance: CARBOPLATIN
     Indication: Lung carcinoma cell type unspecified stage IV
     Dosage: DOSE: 5 AUC
     Route: 042
     Dates: start: 20181228

REACTIONS (14)
  - Febrile neutropenia [Recovered/Resolved]
  - Pancytopenia [Unknown]
  - Anaemia [Unknown]
  - Platelet count decreased [Unknown]
  - Pneumonitis [Unknown]
  - Atelectasis [Unknown]
  - Dyspnoea [Unknown]
  - Urinary tract infection [Unknown]
  - Abdominal pain [Unknown]
  - Vomiting [Unknown]
  - Gastrointestinal disorder [Unknown]
  - Renal abscess [Unknown]
  - Palpitations [Unknown]
  - Pyrexia [Unknown]

NARRATIVE: CASE EVENT DATE: 20190101
